FAERS Safety Report 13669741 (Version 2)
Quarter: 2017Q2

REPORT INFORMATION
  Report Type: Report from Study
  Country: IE (occurrence: IE)
  Receive Date: 20170620
  Receipt Date: 20170629
  Transmission Date: 20170830
  Serious: Yes (Hospitalization, Other)
  Sender: FDA-Public Use
  Company Number: IE-AMGEN-IRLSL2017092989

PATIENT
  Age: 42 Year
  Sex: Male

DRUGS (13)
  1. NEUPOGEN [Suspect]
     Active Substance: FILGRASTIM
     Indication: DIFFUSE LARGE B-CELL LYMPHOMA
     Dosage: UNK
     Route: 065
     Dates: start: 2017
  2. CYCLIZINE [Concomitant]
     Active Substance: CYCLIZINE
     Dosage: 50 MG, PER CHEMO REGIM
     Route: 050
  3. IMURAN [Concomitant]
     Active Substance: AZATHIOPRINE
     Dosage: 50 MG, QD
     Route: 050
  4. PREDNISOLONE. [Concomitant]
     Active Substance: PREDNISOLONE
     Dosage: 50 MG, PER CHEMO REGIM
     Route: 050
  5. NACL [Concomitant]
     Active Substance: SODIUM CHLORIDE
     Dosage: 10 ML, PER CHEMO REGIM
     Route: 050
  6. DOMPERIDONE [Concomitant]
     Active Substance: DOMPERIDONE
     Dosage: 10 MG, PER CHEMO REGIM
     Route: 050
  7. NEULASTA [Suspect]
     Active Substance: PEGFILGRASTIM
     Indication: DIFFUSE LARGE B-CELL LYMPHOMA
     Dosage: 6 MG, Q3WK (POST CHEMOTHERAPY)
     Route: 058
     Dates: end: 2017
  8. LANSOPRAZOLE. [Concomitant]
     Active Substance: LANSOPRAZOLE
     Dosage: 30 MG, PER CHEMO REGIM
     Route: 050
  9. MYCOSTATIN [Concomitant]
     Active Substance: NYSTATIN
     Dosage: 1 MG, PER CHEMO REGIM
     Route: 050
  10. DIAZEPAM. [Concomitant]
     Active Substance: DIAZEPAM
     Dosage: 2 MG, PER CHEMO REGIM
     Route: 050
  11. HALF BETA PROGRANE [Concomitant]
     Dosage: 80 MG, QD
     Route: 050
  12. CALCICHEW [Concomitant]
     Active Substance: CALCIUM CARBONATE
     Dosage: 500 MG, QD
     Route: 050
  13. URSOFALK [Concomitant]
     Active Substance: URSODIOL
     Dosage: 1500 MG, QD
     Route: 050

REACTIONS (5)
  - Body temperature abnormal [Unknown]
  - Platelet count decreased [Unknown]
  - Blood count abnormal [Unknown]
  - Decreased immune responsiveness [Not Recovered/Not Resolved]
  - Off label use [Unknown]

NARRATIVE: CASE EVENT DATE: 2017
